FAERS Safety Report 16733278 (Version 4)
Quarter: 2020Q1

REPORT INFORMATION
  Report Type: Report from Study
  Country: None (occurrence: US)
  Receive Date: 20190823
  Receipt Date: 20200103
  Transmission Date: 20200409
  Serious: Yes (Other)
  Sender: FDA-Public Use
  Company Number: US-ABBVIE-19K-163-2800454-00

PATIENT
  Age: 54 Year
  Sex: Female

DRUGS (1)
  1. HUMIRA [Suspect]
     Active Substance: ADALIMUMAB
     Indication: RHEUMATOID ARTHRITIS
     Route: 058

REACTIONS (21)
  - Chills [Recovering/Resolving]
  - Pain in extremity [Not Recovered/Not Resolved]
  - Balance disorder [Not Recovered/Not Resolved]
  - Fall [Recovering/Resolving]
  - Infection [Recovering/Resolving]
  - Bone disorder [Not Recovered/Not Resolved]
  - Gait inability [Unknown]
  - Exostosis [Not Recovered/Not Resolved]
  - Foot operation [Not Recovered/Not Resolved]
  - Head injury [Recovering/Resolving]
  - Fall [Recovered/Resolved]
  - Pain [Recovering/Resolving]
  - Insomnia [Unknown]
  - Drug ineffective [Recovering/Resolving]
  - Hand fracture [Recovered/Resolved]
  - Limb injury [Recovering/Resolving]
  - Oropharyngeal pain [Recovering/Resolving]
  - Impaired healing [Unknown]
  - Vitamin D decreased [Unknown]
  - Musculoskeletal disorder [Unknown]
  - Burning sensation [Not Recovered/Not Resolved]

NARRATIVE: CASE EVENT DATE: 2017
